FAERS Safety Report 9449017 (Version 1)
Quarter: 2013Q3

REPORT INFORMATION
  Report Type: Spontaneous
  Country: DE (occurrence: DE)
  Receive Date: 20130808
  Receipt Date: 20130808
  Transmission Date: 20140515
  Serious: Yes (Other)
  Sender: FDA-Public Use
  Company Number: GXKR2013DE002467

PATIENT
  Sex: Male
  Weight: 100 kg

DRUGS (7)
  1. METOHEXAL SUCC 47.5 MG RETARD (METOPROLOL SUCCINATE) [Suspect]
     Indication: TACHYCARDIA
     Dosage: 95 MG, QD
     Route: 048
  2. EBRANTIL [Concomitant]
  3. AMLODIPINE [Concomitant]
  4. MARCUMAR [Concomitant]
  5. TORASEMID [Concomitant]
  6. ATACAND [Concomitant]
  7. SIMVASTATIN [Concomitant]

REACTIONS (2)
  - Syncope [Not Recovered/Not Resolved]
  - Nightmare [Not Recovered/Not Resolved]
